FAERS Safety Report 4976881-X (Version None)
Quarter: 2006Q2

REPORT INFORMATION
  Report Type: 
  Country: None (occurrence: None)
  Receive Date: 20060413
  Receipt Date: 20060403
  Transmission Date: 20061013
  Serious: Yes (Other)
  Sender: FDA-Public Use
  Company Number: 2006046861

PATIENT
  Age: 69 Year
  Sex: Female
  Weight: 83.9154 kg

DRUGS (8)
  1. CELEBREX [Suspect]
     Indication: ARTHRALGIA
     Dosage: 200 MG (200 MG, 1 IN 1 D) ORAL
     Route: 048
  2. NEXIUM [Concomitant]
  3. NORVASC [Concomitant]
  4. DIOVAN [Concomitant]
  5. GLUCOVANCE [Concomitant]
  6. ATENOLOL [Concomitant]
  7. HYDROCHLOROTHIAZIDE [Concomitant]
  8. ALL OTHER THERAPEUTIC PRODUCTS [Concomitant]

REACTIONS (6)
  - BLOOD CHOLESTEROL INCREASED [None]
  - DEATH OF SPOUSE [None]
  - DIABETES MELLITUS [None]
  - HYPERTENSION [None]
  - KNEE ARTHROPLASTY [None]
  - NERVE COMPRESSION [None]
